FAERS Safety Report 9523951 (Version 1)
Quarter: 2013Q1

REPORT INFORMATION
  Report Type: Spontaneous
  Country: US (occurrence: None)
  Receive Date: 20130313
  Receipt Date: 20130313
  Transmission Date: 20140127
  Serious: No
  Sender: FDA-Public Use
  Company Number: 1000029882

PATIENT
  Age: 64 Year
  Sex: Female

DRUGS (17)
  1. SAVELLA (MILNACIPRAN HYDROCHLORIDE) (12.5 MILLIGRAM, TABLETS) [Suspect]
     Indication: FIBROMYALGIA
     Dosage: 12.5 MG (12.5 MG, 1 IN 1 D), ORAL
     Route: 048
     Dates: start: 2012, end: 2012
  2. SAVELLA (MILNACIPRAN HYDROCHLORIDE) (50 MILLIGRAM, TABLETS) [Suspect]
     Indication: FIBROMYALGIA
     Dosage: 100 MG (50 MG, 2 IN 1 D), ORAL
     Route: 048
     Dates: start: 2012, end: 20120415
  3. SSKI (POTASSIUM IODINE) (POTASSIUM IODIDE) [Concomitant]
  4. NOVOLOG (INSULIN ASPART) (INSULIN) [Concomitant]
  5. CILOSTAZOL (CILOSTAZOL) (CILOSTAZOL) [Concomitant]
  6. AZELASTINE (AZELASTINE) (AZELASTINE) [Concomitant]
  7. LEVOXYL (LEVOTHYROXINE SODIUM) (LEVOTHYROXINE SODIUM) [Concomitant]
  8. BENICAR (OLMESARTAN MEDOXOMIL) (OLMESARTAN MEDOXOMIL) [Concomitant]
  9. LOVASTATIN (LOVASTATIN) (LOVASTATIN) [Concomitant]
  10. METFORMIN (METFORMIN) (METFORMIN) [Concomitant]
  11. GABAPENTIN (GABAPENTIN) (GABAPENTIN) [Concomitant]
  12. TRAVATAN Z (TRAVOPROST) (TARVOPROST) [Concomitant]
  13. ISTALOL (TIMOLOL MALEATE) (TIMNOLOL MALEATE) [Concomitant]
  14. PATANOL (OLOPATADINE HYDROCHLORIDE) (OLOPATADINE HYDROCHLORIDE)? [Concomitant]
  15. ESTRACE (ESTRADIOL) (ESTRADIOL) [Concomitant]
  16. KETOCONAZOLE (KETOCONAZOLE) (KETOCONAZOLE) [Concomitant]
  17. HYDROCODONE (HYDROCODONE) (HYDROCODONEO) [Concomitant]

REACTIONS (2)
  - Diarrhoea [None]
  - Vision blurred [None]
